FAERS Safety Report 17139854 (Version 2)
Quarter: 2020Q1

REPORT INFORMATION
  Report Type: Spontaneous
  Country: PT (occurrence: PT)
  Receive Date: 20191211
  Receipt Date: 20200109
  Transmission Date: 20200409
  Serious: Yes (Disabling)
  Sender: FDA-Public Use
  Company Number: PT-TEVA-2019-PT-1148855

PATIENT
  Age: 71 Year
  Sex: Female

DRUGS (3)
  1. PREDNISOLONE. [Concomitant]
     Active Substance: PREDNISOLONE
     Indication: PSORIATIC ARTHROPATHY
     Dosage: 5 MILLIGRAM PER DAY, IT^S BEEN MANY YEARS
     Route: 048
  2. LEVOFLOXACIN. [Suspect]
     Active Substance: LEVOFLOXACIN
     Dosage: 500 MILLIGRAM
     Route: 048
     Dates: start: 20191019, end: 20191029
  3. LEVOFLOXACIN. [Suspect]
     Active Substance: LEVOFLOXACIN
     Indication: RESPIRATORY TRACT INFECTION
     Dosage: 1000 MILLIGRAM PER DAY
     Route: 048
     Dates: start: 20191019, end: 20191029

REACTIONS (8)
  - Arthralgia [Unknown]
  - Product administration error [Unknown]
  - Tachycardia [Unknown]
  - Constipation [Recovered/Resolved]
  - Hyperhidrosis [Unknown]
  - Sleep disorder [Unknown]
  - Anxiety [Unknown]
  - Vaginal infection [Recovered/Resolved]

NARRATIVE: CASE EVENT DATE: 20191021
